FAERS Safety Report 7324265-1 (Version None)
Quarter: 2011Q1

REPORT INFORMATION
  Report Type: 
  Country: None (occurrence: None)
  Receive Date: 20110301
  Receipt Date: 20110220
  Transmission Date: 20110831
  Serious: Yes (Other)
  Sender: FDA-Public Use
  Company Number: FR-AMGEN-FRASP2011007839

PATIENT
  Age: 60 Year
  Sex: Female
  Weight: 69 kg

DRUGS (4)
  1. AVLOCARDYL                         /00030001/ [Concomitant]
     Dosage: 40 A?G, UNK
     Route: 048
  2. METEOXANE [Concomitant]
  3. CINACALCET HYDROCHLORIDE [Suspect]
     Indication: HYPERPARATHYROIDISM SECONDARY
     Dosage: 30 MG, QD
     Dates: end: 20101111
  4. FOSRENOL [Concomitant]
     Indication: HYPERPARATHYROIDISM
     Dosage: 1700 A?G, UNK
     Route: 048

REACTIONS (1)
  - VENTRICULAR EXTRASYSTOLES [None]
